FAERS Safety Report 9319423 (Version 7)
Quarter: 2014Q3

REPORT INFORMATION
  Report Type: Spontaneous
  Country: US (occurrence: US)
  Receive Date: 20130530
  Receipt Date: 20140919
  Transmission Date: 20150326
  Serious: Yes (Hospitalization)
  Sender: FDA-Public Use
  Company Number: US-GLAXOSMITHKLINE-A0978260A

PATIENT
  Age: 55 Year
  Sex: Female

DRUGS (3)
  1. ADCIRCA [Concomitant]
     Active Substance: TADALAFIL
  2. FLOLAN [Suspect]
     Active Substance: EPOPROSTENOL SODIUM
     Indication: COR PULMONALE CHRONIC
     Dosage: 12NGKM CONTINUOUS
     Route: 042
     Dates: start: 20120430
  3. ASPIRIN. [Concomitant]
     Active Substance: ASPIRIN
     Indication: CONNECTIVE TISSUE DISORDER

REACTIONS (20)
  - Nausea [Not Recovered/Not Resolved]
  - Oral herpes [Unknown]
  - Clavicle fracture [Unknown]
  - Orthosis user [Unknown]
  - Feeling abnormal [Unknown]
  - Flushing [Unknown]
  - Upper limb fracture [Unknown]
  - Catheter site erythema [Unknown]
  - Hypoaesthesia [Unknown]
  - Fall [Unknown]
  - Road traffic accident [Unknown]
  - Rehabilitation therapy [Unknown]
  - Neck pain [Unknown]
  - Back pain [Unknown]
  - Musculoskeletal pain [Unknown]
  - Catheter site discharge [Recovered/Resolved]
  - Thoracic vertebral fracture [Unknown]
  - Pneumonia [Unknown]
  - Headache [Unknown]
  - Influenza [Unknown]

NARRATIVE: CASE EVENT DATE: 201205
